FAERS Safety Report 8179789-4 (Version None)
Quarter: 2012Q1

REPORT INFORMATION
  Report Type: 
  Country: None (occurrence: None)
  Receive Date: 20120229
  Receipt Date: 20120229
  Transmission Date: 20120608
  Serious: Yes (Other)
  Sender: FDA-Public Use
  Company Number: None

PATIENT
  Age: 3 Month
  Sex: Male
  Weight: 6 kg

DRUGS (1)
  1. J+J BABY WASH HONEY APPLE 15OZ [Suspect]
     Indication: BALNEOTHERAPY
     Dosage: LESS THAN DIME, 1X, TOPICAL
     Route: 061
     Dates: start: 20120220, end: 20120220

REACTIONS (7)
  - OCULAR HYPERAEMIA [None]
  - EYE IRRITATION [None]
  - CHOKING [None]
  - COUGH [None]
  - ACCIDENTAL EXPOSURE [None]
  - RASH ERYTHEMATOUS [None]
  - CRYING [None]
